FAERS Safety Report 18060807 (Version 8)
Quarter: 2024Q3

REPORT INFORMATION
  Report Type: Spontaneous
  Country: GR (occurrence: GR)
  Receive Date: 20200723
  Receipt Date: 20240916
  Transmission Date: 20241017
  Serious: Yes (Hospitalization, Other)
  Sender: GLAXOSMITHKLINE
  Company Number: None

PATIENT

DRUGS (42)
  1. VALTREX [Suspect]
     Active Substance: VALACYCLOVIR HYDROCHLORIDE
     Indication: Non-Hodgkin^s lymphoma
     Dosage: 500 MG
     Route: 048
     Dates: start: 20190513, end: 20190516
  2. VALTREX [Suspect]
     Active Substance: VALACYCLOVIR HYDROCHLORIDE
     Dosage: 500 MG; 1 CYCLE
     Route: 048
     Dates: start: 20200108, end: 20200113
  3. CYCLOPHOSPHAMIDE\DOXORUBICIN\PREDNISONE\VINCRISTINE [Suspect]
     Active Substance: CYCLOPHOSPHAMIDE\DOXORUBICIN\PREDNISONE\VINCRISTINE
     Indication: Diffuse large B-cell lymphoma
     Dosage: UNK, 8 CYCLES
     Route: 065
     Dates: start: 20190513, end: 20191013
  4. LOSEC [Suspect]
     Active Substance: OMEPRAZOLE
     Indication: Non-Hodgkin^s lymphoma
     Dosage: UNK, 1 CYCLES TWICE
     Route: 042
     Dates: start: 20191223, end: 20200113
  5. CISPLATIN\CYTARABINE\ETOPOSIDE\METHYLPREDNISOLONE (ESHAP) [Suspect]
     Active Substance: CISPLATIN\CYTARABINE\ETOPOSIDE\METHYLPREDNISOLONE (ESHAP)
     Indication: Diffuse large B-cell lymphoma
     Dosage: UNK, 2 CYCLES
     Route: 065
     Dates: start: 20191113, end: 20191223
  6. ALDACTONE [Suspect]
     Active Substance: SPIRONOLACTONE
     Indication: Non-Hodgkin^s lymphoma
     Dosage: 100 MG, 1 CYCLE
     Route: 048
     Dates: start: 20200105, end: 20200112
  7. ERYTHROPOIETIN [Suspect]
     Active Substance: ERYTHROPOIETIN
     Indication: Anaemia
     Dosage: UNK, 1 CYCLE
     Route: 058
     Dates: start: 20190523, end: 20200124
  8. LASIX [Suspect]
     Active Substance: FUROSEMIDE
     Indication: Non-Hodgkin^s lymphoma
     Dosage: UNK, 1 CYCLE
     Route: 042
     Dates: start: 20200110, end: 20200113
  9. ALBUMIN (HUMAN) [Suspect]
     Active Substance: ALBUMIN HUMAN
     Indication: Non-Hodgkin^s lymphoma
     Dosage: 50 MG, 1 CYLCE 50MG X2
     Route: 042
     Dates: start: 20200110, end: 20200113
  10. CUBICIN [Suspect]
     Active Substance: DAPTOMYCIN
     Indication: Non-Hodgkin^s lymphoma
     Dosage: 350 MG, 1 CYLCE
     Route: 042
     Dates: start: 20200102, end: 20200113
  11. MEROPENEM [Suspect]
     Active Substance: MEROPENEM
     Indication: Non-Hodgkin^s lymphoma
     Dosage: 2 G, 1 CYCLE 2GX3
     Route: 042
     Dates: start: 20200103, end: 20200113
  12. CANCIDAS [Suspect]
     Active Substance: CASPOFUNGIN ACETATE
     Indication: Non-Hodgkin^s lymphoma
     Dosage: 50 MG
     Route: 042
     Dates: start: 20200105, end: 20200113
  13. MABTHERA [Suspect]
     Active Substance: RITUXIMAB
     Indication: Non-Hodgkin^s lymphoma
     Dosage: 1400 MG, 6 CYCLES
     Route: 058
     Dates: start: 20190625, end: 20191009
  14. MABTHERA [Suspect]
     Active Substance: RITUXIMAB
     Dosage: 1400 MG, 1 CYCLE
     Route: 058
     Dates: start: 20191113, end: 20191210
  15. MABTHERA [Suspect]
     Active Substance: RITUXIMAB
     Dosage: 650 MG;1 CYCLE
     Route: 058
     Dates: start: 20191222, end: 20200113
  16. NORVASC [Suspect]
     Active Substance: AMLODIPINE BESYLATE
     Indication: Hypertension
     Dosage: 5 MG, 1 CYCLE
     Route: 048
     Dates: start: 20190515, end: 20190516
  17. VEPESID [Suspect]
     Active Substance: ETOPOSIDE
     Indication: Non-Hodgkin^s lymphoma
     Dosage: 90 MG, 2 CYCLE
     Route: 042
     Dates: start: 20191119, end: 20200113
  18. VEPESID [Suspect]
     Active Substance: ETOPOSIDE
     Dosage: UNK
     Route: 058
  19. CISPLATIN [Suspect]
     Active Substance: CISPLATIN
     Indication: Non-Hodgkin^s lymphoma
     Dosage: UNK
     Route: 058
  20. CISPLATIN [Suspect]
     Active Substance: CISPLATIN
     Dosage: 38 MG, 2 CYCLES
     Route: 042
     Dates: start: 20191119, end: 20200113
  21. CYTARABINE [Suspect]
     Active Substance: CYTARABINE
     Indication: Non-Hodgkin^s lymphoma
     Dosage: 3 G, 2 CYCLES
     Route: 042
     Dates: start: 20191123, end: 20200113
  22. RITUXIMAB [Suspect]
     Active Substance: RITUXIMAB
     Indication: Diffuse large B-cell lymphoma
     Dosage: UNK, 8 CYCLES
     Route: 042
     Dates: start: 20190513, end: 20191013
  23. RITUXIMAB [Suspect]
     Active Substance: RITUXIMAB
     Dosage: UNK, 8 CYCLES
     Route: 042
     Dates: start: 20191113, end: 20191223
  24. RITUXIMAB [Suspect]
     Active Substance: RITUXIMAB
     Dosage: UNK; 2 CYCLE
     Route: 042
     Dates: start: 20190113, end: 20191223
  25. DOXORUBICIN [Suspect]
     Active Substance: DOXORUBICIN
     Indication: Non-Hodgkin^s lymphoma
     Dosage: UNK
     Route: 058
  26. DOXORUBICIN [Suspect]
     Active Substance: DOXORUBICIN
     Dosage: 75 MG, 8 CYCLES
     Route: 042
     Dates: start: 20190513, end: 20191009
  27. FILGRASTIM [Suspect]
     Active Substance: FILGRASTIM
     Indication: Leukopenia
     Dosage: UNK
     Route: 058
     Dates: start: 20190523, end: 20200117
  28. CHLORPHENIRAMINE MALEATE [Suspect]
     Active Substance: CHLORPHENIRAMINE MALEATE
     Indication: Non-Hodgkin^s lymphoma
     Dosage: UNK, 1 CYCLE
     Route: 048
     Dates: start: 20200110, end: 20200112
  29. VINCRISTINE SULFATE [Suspect]
     Active Substance: VINCRISTINE SULFATE
     Indication: Diffuse large B-cell lymphoma
     Dosage: UNK
     Route: 065
  30. VINCRISTINE SULFATE [Suspect]
     Active Substance: VINCRISTINE SULFATE
     Indication: Non-Hodgkin^s lymphoma
  31. VINCRISTINE SULFATE [Suspect]
     Active Substance: VINCRISTINE SULFATE
     Indication: Hypertension
  32. VINCRISTINE SULFATE [Suspect]
     Active Substance: VINCRISTINE SULFATE
     Indication: Anaemia
  33. VINCRISTINE SULFATE [Suspect]
     Active Substance: VINCRISTINE SULFATE
     Indication: Leukopenia
  34. PREDNISONE [Suspect]
     Active Substance: PREDNISONE
     Indication: Product used for unknown indication
     Dosage: UNK
     Route: 065
  35. CHLORPHENIRAMINE MALEATE [Suspect]
     Active Substance: CHLORPHENIRAMINE MALEATE
     Indication: Non-Hodgkin^s lymphoma
     Dosage: UNK, 1 CYCLE
     Route: 048
     Dates: start: 20200110, end: 20200112
  36. DOXORUBICIN HYDROCHLORIDE [Suspect]
     Active Substance: DOXORUBICIN HYDROCHLORIDE
     Indication: Non-Hodgkin^s lymphoma
     Dosage: 75 MG, 8 CYCLES
     Route: 042
     Dates: start: 20190513, end: 20200124
  37. DOXORUBICIN HYDROCHLORIDE [Suspect]
     Active Substance: DOXORUBICIN HYDROCHLORIDE
     Dosage: UNK
     Route: 042
  38. ALDACTONE [Suspect]
     Active Substance: SPIRONOLACTONE
     Indication: Non-Hodgkin^s lymphoma
     Dosage: UNK
     Route: 042
  39. NORVASC [Suspect]
     Active Substance: AMLODIPINE BESYLATE
     Indication: Hypertension
     Dosage: UNK
     Route: 058
  40. VALTREX [Suspect]
     Active Substance: VALACYCLOVIR HYDROCHLORIDE
     Indication: Non-Hodgkin^s lymphoma
     Dosage: UNK
     Route: 058
  41. VALTREX [Suspect]
     Active Substance: VALACYCLOVIR HYDROCHLORIDE
     Dosage: UNK
     Route: 042
  42. RITUXIMAB [Suspect]
     Active Substance: RITUXIMAB
     Indication: Diffuse large B-cell lymphoma
     Dosage: UNK; 3 CYCLES
     Route: 058
     Dates: start: 20190513, end: 20190625

REACTIONS (5)
  - Diffuse large B-cell lymphoma refractory [Unknown]
  - Neoplasm progression [Unknown]
  - Disease progression [Unknown]
  - Off label use [Unknown]
  - Product use in unapproved indication [Unknown]

NARRATIVE: CASE EVENT DATE: 20190513
